FAERS Safety Report 5401334-4 (Version None)
Quarter: 2007Q3

REPORT INFORMATION
  Report Type: 
  Country: None (occurrence: None)
  Receive Date: 20070726
  Receipt Date: 20070717
  Transmission Date: 20080115
  Serious: Yes (Other)
  Sender: FDA-Public Use
  Company Number: GXKR2007GB06186

PATIENT
  Age: 65 Year
  Sex: Female

DRUGS (6)
  1. SERTRALINE [Suspect]
     Indication: DEPRESSION
     Dosage: 25 MG, QD
     Dates: start: 20070208
  2. MODAFINIL [Suspect]
     Indication: DEPRESSED LEVEL OF CONSCIOUSNESS
     Dosage: 200 MG
     Dates: start: 20070130, end: 20070226
  3. DANTROLENE SODIUM [Concomitant]
  4. LANSOPRAZOLE [Concomitant]
  5. RAMIPRIL [Concomitant]
  6. SINEMET [Concomitant]

REACTIONS (3)
  - BLOOD SODIUM INCREASED [None]
  - HYPERTENSION [None]
  - SOMNOLENCE [None]
